FAERS Safety Report 11310292 (Version 1)
Quarter: 2015Q3

REPORT INFORMATION
  Report Type: Spontaneous
  Country: JP (occurrence: JP)
  Receive Date: 20150724
  Receipt Date: 20150724
  Transmission Date: 20151125
  Serious: Yes (Other)
  Sender: FDA-Public Use
  Company Number: JP-BAUSCH-BL-2015-017767

PATIENT
  Age: 7 Decade
  Sex: Female

DRUGS (2)
  1. MAGCOROL P [Concomitant]
     Indication: PRODUCT USED FOR UNKNOWN INDICATION
  2. MOVIPREP [Suspect]
     Active Substance: ASCORBIC ACID\POLYETHYLENE GLYCOL 3350\POTASSIUM CHLORIDE\SODIUM ASCORBATE\SODIUM CHLORIDE\SODIUM SULFATE
     Indication: ENDOSCOPY LARGE BOWEL
     Route: 048

REACTIONS (2)
  - Hyponatraemia [Recovered/Resolved]
  - Loss of consciousness [Recovered/Resolved]
